FAERS Safety Report 6844779-8 (Version None)
Quarter: 2010Q3

REPORT INFORMATION
  Report Type: 
  Country: None (occurrence: None)
  Receive Date: 20100715
  Receipt Date: 20100702
  Transmission Date: 20110219
  Serious: Yes (Other)
  Sender: FDA-Public Use
  Company Number: GR-SANOFI-AVENTIS-2010SA038468

PATIENT

DRUGS (4)
  1. OXALIPLATIN [Suspect]
  2. CAPECITABINE [Suspect]
  3. CETUXIMAB [Suspect]
  4. THERAPEUTIC RADIOPHARMACEUTICALS [Suspect]

REACTIONS (3)
  - DERMATITIS ACNEIFORM [None]
  - DIARRHOEA [None]
  - IMPAIRED HEALING [None]
